FAERS Safety Report 5487912-5 (Version None)
Quarter: 2007Q4

REPORT INFORMATION
  Report Type: 
  Country: None (occurrence: None)
  Receive Date: 20071012
  Receipt Date: 20071012
  Transmission Date: 20080405
  Serious: Yes (Life-Threatening, Hospitalization)
  Sender: FDA-Public Use
  Company Number: None

PATIENT
  Age: 36 Year
  Sex: Female
  Weight: 42.6381 kg

DRUGS (1)
  1. CIPRO [Suspect]
     Indication: NASAL MUCOSAL DISORDER
     Dosage: 500 MG TWICE DAILY PO
     Route: 048
     Dates: start: 20071001, end: 20071005

REACTIONS (2)
  - PALPITATIONS [None]
  - PARAESTHESIA [None]
